FAERS Safety Report 9103258 (Version 1)
Quarter: 2013Q1

REPORT INFORMATION
  Report Type: Spontaneous
  Country: CA (occurrence: CA)
  Receive Date: 20130219
  Receipt Date: 20130219
  Transmission Date: 20140127
  Serious: Yes (Death)
  Sender: FDA-Public Use
  Company Number: CA-009507513-1302CAN008488

PATIENT
  Age: 63 Year
  Sex: Male

DRUGS (1)
  1. ZENHALE [Suspect]
     Indication: ASTHMA
     Dosage: UNK
     Route: 048

REACTIONS (1)
  - Death [Fatal]
